FAERS Safety Report 8789923 (Version 2)
Quarter: 2012Q4

REPORT INFORMATION
  Report Type: 
  Country: BR (occurrence: BR)
  Receive Date: 20120917
  Receipt Date: 20121004
  Transmission Date: 20130627
  Serious: Yes (Hospitalization, Other)
  Sender: FDA-Public Use
  Company Number: BR-ELI_LILLY_AND_COMPANY-BR201209002955

PATIENT
  Sex: Female
  Weight: 56 kg

DRUGS (10)
  1. HUMALOG LISPRO [Suspect]
     Indication: TYPE 1 DIABETES MELLITUS
     Dosage: UNK, other
     Route: 058
  2. HUMALOG LISPRO [Suspect]
     Dosage: UNK, other
     Route: 058
     Dates: start: 20120905
  3. LANTUS [Concomitant]
     Dosage: UNK, unknown
     Route: 065
  4. MYFORTIC [Concomitant]
     Dosage: UNK, unknown
     Route: 065
  5. PREDNISONE [Concomitant]
     Dosage: UNK, unknown
     Route: 065
  6. PROGRAF [Concomitant]
     Dosage: UNK, unknown
     Route: 065
  7. SUSTRATE [Concomitant]
     Indication: CARDIAC DISORDER
     Dosage: UNK, unknown
     Route: 065
  8. SELOZOK [Concomitant]
     Indication: CARDIAC DISORDER
     Dosage: UNK, unknown
     Route: 065
  9. ASPIRIN [Concomitant]
     Indication: CARDIAC DISORDER
     Dosage: UNK, unknown
     Route: 065
  10. CRESTOR [Concomitant]
     Indication: CARDIAC DISORDER
     Dosage: UNK, unknown
     Route: 065

REACTIONS (5)
  - Blood glucose increased [Recovering/Resolving]
  - Bacterial infection [Recovered/Resolved]
  - Neoplasm malignant [Unknown]
  - Blood glucose increased [Unknown]
  - Drug ineffective [Unknown]
